FAERS Safety Report 24430859 (Version 1)
Quarter: 2024Q4

REPORT INFORMATION
  Report Type: Spontaneous
  Country: DE (occurrence: DE)
  Receive Date: 20241014
  Receipt Date: 20241014
  Transmission Date: 20250114
  Serious: Yes (Other)
  Sender: CELLTRION
  Company Number: DE-AMGEN-DEUSP2024068412

PATIENT

DRUGS (6)
  1. TRASTUZUMAB [Suspect]
     Active Substance: TRASTUZUMAB
     Indication: HER2 positive salivary gland cancer
     Dosage: UNK, Q8WK
     Route: 065
  2. TRASTUZUMAB [Suspect]
     Active Substance: TRASTUZUMAB
     Indication: Metastases to lung
  3. DOCETAXEL [Suspect]
     Active Substance: DOCETAXEL
     Indication: Metastases to lung
     Dosage: UNK
     Route: 065
  4. DOCETAXEL [Suspect]
     Active Substance: DOCETAXEL
     Indication: HER2 positive salivary gland cancer
  5. NIVOLUMAB [Concomitant]
     Active Substance: NIVOLUMAB
     Indication: Squamous cell carcinoma
     Dosage: 240 MILLIGRAM, Q2WK
     Route: 065
  6. NIVOLUMAB [Concomitant]
     Active Substance: NIVOLUMAB
     Dosage: 240 MILLIGRAM, Q12WK
     Route: 065

REACTIONS (3)
  - HER2 positive salivary gland cancer [Unknown]
  - Drug ineffective for unapproved indication [Unknown]
  - Off label use [Unknown]
